FAERS Safety Report 16306705 (Version 1)
Quarter: 2019Q2

REPORT INFORMATION
  Report Type: Report from Study
  Country: DE (occurrence: DE)
  Receive Date: 20190513
  Receipt Date: 20190513
  Transmission Date: 20190711
  Serious: Yes (Death, Hospitalization, Other)
  Sender: FDA-Public Use
  Company Number: PHHY2017DE135594

PATIENT
  Sex: Male
  Weight: 104 kg

DRUGS (31)
  1. VOTRIENT [Suspect]
     Active Substance: PAZOPANIB HYDROCHLORIDE
     Dosage: 200 MG, QD
     Route: 048
     Dates: start: 20171109, end: 20171231
  2. DUROGESIC [Suspect]
     Active Substance: FENTANYL
     Indication: BACK PAIN
     Dosage: 25 UG, QOD
     Route: 061
     Dates: start: 20170909
  3. TARGIN [Concomitant]
     Active Substance: NALOXONE HYDROCHLORIDE\OXYCODONE HYDROCHLORIDE
     Dosage: 30 MG, BID
     Route: 048
     Dates: start: 20180926, end: 20180928
  4. AMOXICILLIN. [Concomitant]
     Active Substance: AMOXICILLIN
     Indication: URINARY TRACT INFECTION
     Dosage: 1000 MG, BID
     Route: 048
     Dates: start: 20170826, end: 20170904
  5. PAROXETIN [Concomitant]
     Active Substance: PAROXETINE HYDROCHLORIDE
     Indication: DEPRESSION
     Dosage: 20 MG, QD
     Route: 048
     Dates: start: 20181013
  6. HEPARIN [Concomitant]
     Active Substance: HEPARIN SODIUM
     Indication: PROPHYLAXIS
     Dosage: 7500 IU, QD
     Route: 058
     Dates: start: 20180926, end: 20181016
  7. CERNEVIT [Concomitant]
     Active Substance: VITAMINS
     Indication: PROPHYLAXIS
     Dosage: 750 MG, QD
     Route: 042
     Dates: start: 20180927
  8. VOTRIENT [Suspect]
     Active Substance: PAZOPANIB HYDROCHLORIDE
     Indication: METASTATIC RENAL CELL CARCINOMA
     Dosage: 400 MG, QD
     Route: 048
     Dates: start: 20170904, end: 20171010
  9. NIVOLUMAB [Suspect]
     Active Substance: NIVOLUMAB
     Indication: METASTATIC RENAL CELL CARCINOMA
     Dosage: 480 MG, EVERY 28 DAYS, ADMINISTERED OVER A PERIOD OF 1 H
     Route: 042
     Dates: start: 20181009, end: 20181016
  10. NOVALGIN (METAMIZOLE SODIUM) [Concomitant]
     Active Substance: METAMIZOLE SODIUM
     Indication: BACK PAIN
     Dosage: 750 MG, QID
     Route: 048
     Dates: start: 201706
  11. PREGABALIN. [Concomitant]
     Active Substance: PREGABALIN
     Indication: BACK PAIN
     Dosage: 200 MG, UNK
     Route: 048
     Dates: start: 20171024
  12. HYDROMORPH [Concomitant]
     Active Substance: HYDROMORPHONE
     Indication: BACK PAIN
     Dosage: 4 MG, BID
     Route: 048
     Dates: start: 20180928
  13. HYDROMORPH [Concomitant]
     Active Substance: HYDROMORPHONE
     Dosage: 2 MG, QD
     Route: 048
     Dates: start: 20181008, end: 20181010
  14. VOTRIENT [Suspect]
     Active Substance: PAZOPANIB HYDROCHLORIDE
     Dosage: 400 MG, QD
     Route: 048
     Dates: start: 20180101, end: 20180314
  15. CALCILAC [Concomitant]
     Active Substance: CALCIUM CARBONATE
     Indication: PROPHYLAXIS
     Dosage: UNK
     Route: 048
     Dates: start: 20181008
  16. VOTRIENT [Suspect]
     Active Substance: PAZOPANIB HYDROCHLORIDE
     Dosage: 600 MG, QD
     Route: 048
     Dates: start: 20180524, end: 20180731
  17. VOTRIENT [Suspect]
     Active Substance: PAZOPANIB HYDROCHLORIDE
     Dosage: 200 MG, QD
     Route: 048
     Dates: start: 20180315, end: 20180321
  18. KALCIUM / D3 VITAMIN [Concomitant]
     Indication: PROPHYLAXIS
     Dosage: 1 UKN, BID
     Route: 048
     Dates: start: 20170909
  19. OLIMEL [Concomitant]
     Active Substance: AMINO ACIDS\DEXTROSE\SOYBEAN OIL
     Indication: PROPHYLAXIS
     Dosage: 80 ML, QD
     Route: 042
     Dates: start: 20180929
  20. VOTRIENT [Suspect]
     Active Substance: PAZOPANIB HYDROCHLORIDE
     Dosage: 400 MG, QD
     Route: 048
     Dates: start: 20180902, end: 20181004
  21. DELIX [Concomitant]
     Indication: HYPERTENSION
     Dosage: 2.5 MG, BID
     Route: 048
     Dates: start: 201703
  22. TARGIN [Concomitant]
     Active Substance: NALOXONE HYDROCHLORIDE\OXYCODONE HYDROCHLORIDE
     Indication: BACK PAIN
     Dosage: 7.5 MG, QD
     Route: 048
     Dates: start: 201706, end: 20170908
  23. REMERGIL [Concomitant]
     Active Substance: MIRTAZAPINE
     Indication: BACK PAIN
     Dosage: 15 MG, QD
     Route: 048
     Dates: start: 20170909
  24. STEROFUNDIN [Concomitant]
     Active Substance: CALCIUM CHLORIDE\MAGNESIUM CHLORIDE\POTASSIUM CHLORIDE\SODIUM ACETATE\SODIUM CHLORIDE
     Indication: PROPHYLAXIS
     Dosage: 1000 ML, QD
     Route: 042
     Dates: start: 20180926, end: 20181015
  25. VITALIPID [Concomitant]
     Active Substance: ERGOCALCIFEROL\PHYTONADIONE\RETINOL\TOCOPHEROL
     Indication: PROPHYLAXIS
     Dosage: 10 ML, QD
     Route: 042
     Dates: start: 20180927
  26. VOTRIENT [Suspect]
     Active Substance: PAZOPANIB HYDROCHLORIDE
     Dosage: 400 MG, QD
     Route: 048
     Dates: start: 20171024, end: 20171108
  27. MCP ^RATIOPHARM^ [Concomitant]
     Active Substance: METOCLOPRAMIDE HYDROCHLORIDE
     Indication: NAUSEA
     Dosage: 10 MG, PRN
     Route: 048
     Dates: start: 201708
  28. VOTRIENT [Suspect]
     Active Substance: PAZOPANIB HYDROCHLORIDE
     Dosage: 400 MG, QD
     Route: 048
     Dates: start: 20180322, end: 20180523
  29. MOVICOL [Concomitant]
     Active Substance: POLYETHYLENE GLYCOL 3350\POTASSIUM CHLORIDE\SODIUM BICARBONATE\SODIUM CHLORIDE
     Indication: CONSTIPATION
     Dosage: 13.7 G, TID
     Route: 048
     Dates: start: 20170830
  30. FLENIM [Concomitant]
     Indication: PROPHYLAXIS
     Dosage: 1 UKN, BID
     Route: 048
     Dates: start: 201703
  31. CYMBALTA [Concomitant]
     Active Substance: DULOXETINE HYDROCHLORIDE
     Indication: DEPRESSION
     Dosage: 30 MG, UNK
     Route: 048
     Dates: start: 20171024, end: 20180905

REACTIONS (16)
  - Embolic cerebral infarction [Unknown]
  - Pyrexia [Recovered/Resolved]
  - Malignant neoplasm progression [Fatal]
  - Back pain [Not Recovered/Not Resolved]
  - Metastases to lung [Not Recovered/Not Resolved]
  - Vomiting [Recovering/Resolving]
  - Gingivitis [Not Recovered/Not Resolved]
  - Nausea [Recovering/Resolving]
  - Hallucination [Recovered/Resolved]
  - Aspartate aminotransferase increased [Recovered/Resolved]
  - Anaemia [Not Recovered/Not Resolved]
  - Oesophagitis [Not Recovered/Not Resolved]
  - Renal cell carcinoma [Fatal]
  - Dehydration [Recovered/Resolved]
  - Diarrhoea [Not Recovered/Not Resolved]
  - Decreased appetite [Not Recovered/Not Resolved]

NARRATIVE: CASE EVENT DATE: 201709
